FAERS Safety Report 6551004-4 (Version None)
Quarter: 2010Q1

REPORT INFORMATION
  Report Type: 
  Country: None (occurrence: None)
  Receive Date: 20100122
  Receipt Date: 20100122
  Transmission Date: 20100710
  Serious: No
  Sender: FDA-Public Use
  Company Number: None

PATIENT
  Age: 57 Year
  Sex: Male
  Weight: 84.9 kg

DRUGS (1)
  1. CEFPODOXIME PROXETIL [Suspect]
     Indication: URINARY TRACT INFECTION
     Dosage: 200 MG BID PO
     Route: 048
     Dates: start: 20090327, end: 20090404

REACTIONS (3)
  - CLOSTRIDIUM DIFFICILE COLITIS [None]
  - PANCYTOPENIA [None]
  - URINARY HESITATION [None]
